FAERS Safety Report 11914301 (Version 1)
Quarter: 2016Q1

REPORT INFORMATION
  Report Type: Report from Study
  Country: NL (occurrence: NL)
  Receive Date: 20160113
  Receipt Date: 20160113
  Transmission Date: 20160526
  Serious: Yes (Other)
  Sender: FDA-Public Use
  Company Number: NL-KADMON PHARMACEUTICALS, LLC-KAD201601-000087

PATIENT

DRUGS (1)
  1. RIBAVIRIN. [Suspect]
     Active Substance: RIBAVIRIN
     Indication: HEPATITIS E

REACTIONS (2)
  - Oropharyngeal cancer [Unknown]
  - Product use issue [Unknown]
